FAERS Safety Report 5305726-3 (Version None)
Quarter: 2007Q2

REPORT INFORMATION
  Report Type: 
  Country: None (occurrence: None)
  Receive Date: 20070416
  Receipt Date: 20070406
  Transmission Date: 20071010
  Serious: Yes (Hospitalization)
  Sender: FDA-Public Use
  Company Number: TPG2007A00315

PATIENT
  Age: 63 Year
  Sex: Male

DRUGS (1)
  1. ACTOS [Suspect]
     Indication: DIABETES MELLITUS
     Dosage: PER ORAL
     Route: 048

REACTIONS (3)
  - CARDIAC FAILURE [None]
  - GLYCOSYLATED HAEMOGLOBIN INCREASED [None]
  - PULMONARY OEDEMA [None]
